FAERS Safety Report 7956992-7 (Version None)
Quarter: 2011Q4

REPORT INFORMATION
  Report Type: 
  Country: None (occurrence: None)
  Receive Date: 20111205
  Receipt Date: 20111205
  Transmission Date: 20120403
  Serious: Yes (Other)
  Sender: FDA-Public Use
  Company Number: None

PATIENT
  Age: 34 Month
  Sex: Male
  Weight: 70.306 kg

DRUGS (1)
  1. OMEPRAZOLE [Suspect]
     Indication: DYSPEPSIA
     Dosage: 1 20MG PILL
     Route: 048
     Dates: start: 20091130, end: 20111124

REACTIONS (2)
  - DYSPEPSIA [None]
  - COLITIS ULCERATIVE [None]
